FAERS Safety Report 7420452-2 (Version None)
Quarter: 2011Q2

REPORT INFORMATION
  Report Type: 
  Country: None (occurrence: None)
  Receive Date: 20110418
  Receipt Date: 20110412
  Transmission Date: 20111010
  Serious: No
  Sender: FDA-Public Use
  Company Number: US-PFIZER INC-2011080409

PATIENT
  Sex: Male
  Weight: 81.633 kg

DRUGS (5)
  1. ZOCOR [Concomitant]
     Indication: BLOOD CHOLESTEROL INCREASED
     Dosage: UNK
  2. ATENOLOL [Concomitant]
     Indication: PALPITATIONS
     Dosage: UNK
  3. AVALIDE [Concomitant]
     Indication: HYPERTENSION
     Dosage: UNK
  4. ZETIA [Concomitant]
     Indication: BLOOD CHOLESTEROL INCREASED
     Dosage: UNK
  5. CHANTIX [Suspect]
     Indication: SMOKING CESSATION THERAPY
     Dosage: 0.5 MG, 1X/DAY
     Route: 048
     Dates: start: 20110401

REACTIONS (2)
  - ABNORMAL DREAMS [None]
  - INSOMNIA [None]
